FAERS Safety Report 5263753-9 (Version None)
Quarter: 2007Q1

REPORT INFORMATION
  Report Type: 
  Country: None (occurrence: None)
  Receive Date: 20070313
  Receipt Date: 20070308
  Transmission Date: 20070707
  Serious: Yes (Death, Hospitalization)
  Sender: FDA-Public Use
  Company Number: PHEH2007US02855

PATIENT
  Age: 77 Year
  Sex: Male

DRUGS (1)
  1. LOPRESSOR [Suspect]
     Indication: HYPERTENSION

REACTIONS (2)
  - DEATH [None]
  - PSYCHOTIC DISORDER [None]
